FAERS Safety Report 4837933-8 (Version None)
Quarter: 2005Q4

REPORT INFORMATION
  Report Type: 
  Country: None (occurrence: None)
  Receive Date: 20051128
  Receipt Date: 20050901
  Transmission Date: 20060501
  Serious: Yes (Other)
  Sender: FDA-Public Use
  Company Number: SE-ROCHE-416222

PATIENT
  Age: 69 Year
  Sex: Female

DRUGS (2)
  1. CYMEVENE [Suspect]
     Indication: DRUG USE FOR UNKNOWN INDICATION
     Route: 065
  2. GEAVIR [Suspect]
     Indication: DRUG USE FOR UNKNOWN INDICATION
     Dosage: REPORTED AS ACICLOVIR /GEAVIR POWDER FOR INFUSION (HEXAL A/S).
     Route: 065

REACTIONS (1)
  - COMA [None]
